FAERS Safety Report 21515508 (Version 1)
Quarter: 2022Q4

REPORT INFORMATION
  Report Type: Spontaneous
  Country: EG (occurrence: EG)
  Receive Date: 20221027
  Receipt Date: 20221027
  Transmission Date: 20230113
  Serious: Yes (Other)
  Sender: FDA-Public Use
  Company Number: EG-LUNDBECK-DKLU3053564

PATIENT

DRUGS (1)
  1. ESCITALOPRAM OXALATE [Suspect]
     Active Substance: ESCITALOPRAM OXALATE
     Indication: Product used for unknown indication

REACTIONS (11)
  - Mental impairment [Unknown]
  - Feeling abnormal [Unknown]
  - Aggression [Unknown]
  - Abnormal behaviour [Unknown]
  - Thinking abnormal [Unknown]
  - Negative thoughts [Unknown]
  - Product selection error [Unknown]
  - Irritability [Unknown]
  - Suicidal ideation [Unknown]
  - Crying [Unknown]
  - Insomnia [Unknown]
